FAERS Safety Report 23510813 (Version 1)
Quarter: 2024Q1

REPORT INFORMATION
  Report Type: Spontaneous
  Country: US (occurrence: US)
  Receive Date: 20240212
  Receipt Date: 20240212
  Transmission Date: 20240410
  Serious: Yes (Other)
  Sender: FDA-Public Use
  Company Number: US-HALEON-USCH2024006511

PATIENT
  Sex: Male

DRUGS (1)
  1. ROBITUSSIN NOS [Suspect]
     Active Substance: ACETAMINOPHEN\CHLORPHENIRAMINE HYDROCHLORIDE\DEXTROMETHORPHAN\GUAIFENESIN\PHENYLPROPANOLAMINE HYDROC
     Indication: Product used for unknown indication
     Dosage: UNK

REACTIONS (2)
  - Haematemesis [Unknown]
  - Terminal state [Unknown]
